FAERS Safety Report 6610016-2 (Version None)
Quarter: 2010Q1

REPORT INFORMATION
  Report Type: 
  Country: None (occurrence: None)
  Receive Date: 20100224
  Receipt Date: 20100215
  Transmission Date: 20100710
  Serious: Yes (Other)
  Sender: FDA-Public Use
  Company Number: 003849

PATIENT
  Age: 17 Year
  Sex: Male

DRUGS (17)
  1. PREDNISOLONE [Suspect]
     Indication: BURKITT'S LYMPHOMA
  2. TACROLIMUS [Suspect]
     Indication: IMMUNOSUPPRESSION
  3. MERCAPTOPURINE [Suspect]
     Indication: BURKITT'S LYMPHOMA
  4. THIOGUANINE [Suspect]
     Indication: BURKITT'S LYMPHOMA
  5. ACYCLOVIR [Suspect]
     Indication: PROPHYLAXIS
  6. CYTARABINE [Suspect]
     Indication: BURKITT'S LYMPHOMA
  7. TRIMETHOPRIM + SULFAMETHOXAZOLE [Suspect]
     Indication: PROPHYLAXIS
  8. DEXRAZOXANE [Suspect]
  9. DOXORUBICIN HCL [Suspect]
     Indication: BURKITT'S LYMPHOMA
  10. ITRACONAZOLE [Suspect]
     Indication: PROPHYLAXIS
  11. METHOTREXATE [Suspect]
     Indication: BURKITT'S LYMPHOMA
     Dosage: (INTRATHECAL)
     Route: 037
  12. RITUXIMAB (RITUXIMAB) [Suspect]
     Indication: BURKITT'S LYMPHOMA
  13. VINCRISTINE [Suspect]
     Indication: BURKITT'S LYMPHOMA
  14. VP-16 (VP-16) [Suspect]
     Indication: BURKITT'S LYMPHOMA
  15. CYCLOPHOSPHAMIDE [Concomitant]
  16. ONCOVIN [Concomitant]
  17. PREDNISONE [Concomitant]

REACTIONS (4)
  - BURKITT'S LYMPHOMA STAGE III [None]
  - EPSTEIN-BARR VIRUS ASSOCIATED LYMPHOPROLIFERATIVE DISORDER [None]
  - NEUTROPENIA [None]
  - RENAL IMPAIRMENT [None]
